FAERS Safety Report 5713566-6 (Version None)
Quarter: 2008Q2

REPORT INFORMATION
  Report Type: 
  Country: None (occurrence: None)
  Receive Date: 20080422
  Receipt Date: 20080414
  Transmission Date: 20081010
  Serious: Yes (Hospitalization)
  Sender: FDA-Public Use
  Company Number: US-GENENTECH-259373

PATIENT
  Age: 51 Year
  Sex: Female
  Weight: 61.4 kg

DRUGS (3)
  1. BEVACIZUMAB [Suspect]
     Indication: NASOPHARYNGEAL CANCER
     Dosage: 15 MG/KG, UNK
     Route: 042
     Dates: start: 20080225
  2. RADIATION THERAPY [Suspect]
     Indication: NASOPHARYNGEAL CANCER
     Dosage: UNK, UNK
     Dates: start: 20080225
  3. CISPLATIN [Concomitant]
     Indication: NASOPHARYNGEAL CANCER
     Dosage: 100 MG/M2, UNK
     Route: 042
     Dates: start: 20080225

REACTIONS (1)
  - MUCOSAL INFLAMMATION [None]
